FAERS Safety Report 18791025 (Version 2)
Quarter: 2021Q1

REPORT INFORMATION
  Report Type: Report from Study
  Country: None (occurrence: US)
  Receive Date: 20210126
  Receipt Date: 20210130
  Transmission Date: 20210419
  Serious: Yes (Other)
  Sender: FDA-Public Use
  Company Number: US-ABBVIE-21K-163-3744125-00

PATIENT
  Sex: Female

DRUGS (1)
  1. CREON [Suspect]
     Active Substance: PANCRELIPASE AMYLASE\PANCRELIPASE LIPASE\PANCRELIPASE PROTEASE
     Indication: PRODUCT USED FOR UNKNOWN INDICATION
     Route: 048

REACTIONS (7)
  - Pancreatic failure [Unknown]
  - Abdominal pain upper [Unknown]
  - Gastrectomy [Unknown]
  - Splenectomy [Unknown]
  - Oesophageal operation [Unknown]
  - Asthenia [Unknown]
  - Diarrhoea [Unknown]
